FAERS Safety Report 13145697 (Version 1)
Quarter: 2017Q1

REPORT INFORMATION
  Report Type: Spontaneous
  Country: US (occurrence: US)
  Receive Date: 20170124
  Receipt Date: 20170124
  Transmission Date: 20170428
  Serious: Yes (Hospitalization)
  Sender: FDA-Public Use
  Company Number: US-DEPOMED, INC.-US-2017DEP000212

PATIENT

DRUGS (2)
  1. GRALISE [Suspect]
     Active Substance: GABAPENTIN
     Indication: SPINAL OSTEOARTHRITIS
     Dosage: 1800 MG, QD
     Route: 048
     Dates: start: 20161128, end: 201701
  2. GRALISE [Suspect]
     Active Substance: GABAPENTIN
     Indication: RADICULOPATHY

REACTIONS (4)
  - Fluid intake reduced [Recovered/Resolved]
  - Product use issue [Recovered/Resolved]
  - Eating disorder [Recovered/Resolved]
  - Dehydration [Recovered/Resolved]

NARRATIVE: CASE EVENT DATE: 20161128
